FAERS Safety Report 8884678 (Version 3)
Quarter: 2013Q1

REPORT INFORMATION
  Report Type: Spontaneous
  Country: US (occurrence: US)
  Receive Date: 20121102
  Receipt Date: 20130220
  Transmission Date: 20140127
  Serious: Yes (Hospitalization, Disabling, Other)
  Sender: FDA-Public Use
  Company Number: US-MERCK-1210USA010310

PATIENT
  Sex: Female

DRUGS (6)
  1. FOSAMAX [Suspect]
     Indication: OSTEOPOROSIS
     Dosage: 10 MG, UNK
     Route: 048
     Dates: start: 199607, end: 201009
  2. FOSAMAX [Suspect]
     Indication: OSTEOPENIA
     Dosage: 70 MG, UNK
     Route: 048
     Dates: start: 199607, end: 201009
  3. MOEXIPRIL HYDROCHLORIDE [Concomitant]
     Dosage: UNK
     Dates: start: 1982
  4. FELODIPINE [Concomitant]
     Dosage: UNK
     Dates: start: 1982
  5. PANTOPRAZOLE SODIUM [Concomitant]
     Dosage: UNK
     Dates: start: 2002
  6. SIMVASTATIN [Concomitant]
     Dosage: UNK
     Dates: start: 2002

REACTIONS (9)
  - Femur fracture [Not Recovered/Not Resolved]
  - Osteoporosis [Not Recovered/Not Resolved]
  - Stress fracture [Not Recovered/Not Resolved]
  - Low turnover osteopathy [Not Recovered/Not Resolved]
  - Vertigo [Unknown]
  - Cardiac disorder [Unknown]
  - Pain [Unknown]
  - Motion sickness [Recovered/Resolved]
  - Lower limb fracture [Unknown]
